FAERS Safety Report 9217037 (Version 2)
Quarter: 2013Q2

REPORT INFORMATION
  Report Type: Spontaneous
  Country: US (occurrence: None)
  Receive Date: 20130403
  Receipt Date: 20130423
  Transmission Date: 20140414
  Serious: Yes (Other)
  Sender: FDA-Public Use
  Company Number: JPI-P-030767

PATIENT
  Age: 29 Year
  Sex: Female

DRUGS (4)
  1. XYREM [Suspect]
     Indication: NARCOLEPSY
     Dosage: 4.5 GM (2.25 GM, 2 IN 1 D), ORAL
     Dates: start: 20121123
  2. TOPIRAMATE [Concomitant]
  3. TRAZODONE HYDROCHLORIDE [Concomitant]
  4. ESCITALOPRAM OXALATE [Concomitant]

REACTIONS (12)
  - Stress [None]
  - Fatigue [None]
  - Convulsion [None]
  - Pain [None]
  - Tremor [None]
  - Insomnia [None]
  - Eye movement disorder [None]
  - Gait disturbance [None]
  - Fibromyalgia [None]
  - Bursitis [None]
  - Irritable bowel syndrome [None]
  - Ehlers-Danlos syndrome [None]
